FAERS Safety Report 4667300-1 (Version None)
Quarter: 2005Q2

REPORT INFORMATION
  Report Type: 
  Country: None (occurrence: None)
  Receive Date: 20050502
  Receipt Date: 20050321
  Transmission Date: 20051028
  Serious: No
  Sender: FDA-Public Use
  Company Number: 200512252US

PATIENT
  Age: 80 Year
  Sex: Female

DRUGS (2)
  1. KETEK [Suspect]
  2. AMPICILLIN [Concomitant]

REACTIONS (2)
  - DIZZINESS [None]
  - NAUSEA [None]
